FAERS Safety Report 25161710 (Version 1)
Quarter: 2025Q2

REPORT INFORMATION
  Report Type: Spontaneous
  Country: US (occurrence: None)
  Receive Date: 20250404
  Receipt Date: 20250404
  Transmission Date: 20250717
  Serious: Yes (Other)
  Sender: FDA-CTU
  Company Number: None

PATIENT
  Sex: Male

DRUGS (11)
  1. TEMOZOLOMIDE [Suspect]
     Active Substance: TEMOZOLOMIDE
     Indication: Brain neoplasm malignant
     Dosage: FREQUENCY : DAILY;?
     Route: 048
     Dates: start: 20240319
  2. ASPIRIN LOW TAB 81 MG EC [Concomitant]
  3. BACL0FEN [Concomitant]
  4. BACTRIM DS [Concomitant]
     Active Substance: SULFAMETHOXAZOLE\TRIMETHOPRIM
  5. DEXAMETHAS0N TAB 2MG [Concomitant]
  6. L0RAZEPAM TAB 0.5MG [Concomitant]
  7. METHYLPHENID TAB 5MG [Concomitant]
  8. 0NDANSETR0N TAB 8MG 0DT [Concomitant]
  9. PREDNIS0NE TAB 50MG [Concomitant]
  10. TEM0Z0L0MIDE [Concomitant]
  11. TEM0Z0L0MIDE CAP 140MG [Concomitant]

REACTIONS (1)
  - Brain neoplasm [None]
